FAERS Safety Report 10789150 (Version 1)
Quarter: 2015Q1

REPORT INFORMATION
  Report Type: Spontaneous
  Country: US (occurrence: US)
  Receive Date: 20150212
  Receipt Date: 20150212
  Transmission Date: 20150721
  Serious: No
  Sender: FDA-Public Use
  Company Number: US-BAYER-2015-017972

PATIENT
  Age: 17 Year
  Sex: Male

DRUGS (2)
  1. GADAVIST [Suspect]
     Active Substance: GADOBUTROL
     Indication: VENOGRAM
  2. GADAVIST [Suspect]
     Active Substance: GADOBUTROL
     Indication: ANGIOGRAM
     Dosage: 10 CC, ONCE
     Route: 042
     Dates: start: 20150116, end: 20150116

REACTIONS (4)
  - Swelling face [Recovered/Resolved]
  - Urticaria [Recovered/Resolved]
  - Eyelid oedema [Recovered/Resolved]
  - Pruritus [Recovered/Resolved]

NARRATIVE: CASE EVENT DATE: 20150116
